FAERS Safety Report 24945613 (Version 1)
Quarter: 2025Q1

REPORT INFORMATION
  Report Type: Spontaneous
  Country: US (occurrence: US)
  Receive Date: 20250209
  Receipt Date: 20250209
  Transmission Date: 20250408
  Serious: Yes (Hospitalization, Other)
  Sender: DR REDDYS
  Company Number: US-DRL-USA-USA/2025/01/001753

PATIENT
  Age: 71 Year
  Sex: Male

DRUGS (3)
  1. DOXYCYCLINE [Suspect]
     Active Substance: DOXYCYCLINE
     Indication: Pustule
  2. CIPROFLOXACIN [Suspect]
     Active Substance: CIPROFLOXACIN
     Indication: Pustule
  3. LINEZOLID [Suspect]
     Active Substance: LINEZOLID
     Indication: Pustule

REACTIONS (2)
  - Sporotrichosis [Recovered/Resolved]
  - Drug ineffective for unapproved indication [Unknown]
